FAERS Safety Report 18559534 (Version 1)
Quarter: 2020Q4

REPORT INFORMATION
  Report Type: Spontaneous
  Country: US (occurrence: US)
  Receive Date: 20201125
  Receipt Date: 20201125
  Transmission Date: 20210114
  Serious: No
  Sender: FDA-Public Use
  Company Number: None

PATIENT
  Age: 49 Year
  Sex: Female

DRUGS (1)
  1. AUBAGIO [Suspect]
     Active Substance: TERIFLUNOMIDE
     Route: 048
     Dates: start: 201805

REACTIONS (4)
  - Fall [None]
  - Insurance issue [None]
  - Product dose omission issue [None]
  - Manufacturing product shipping issue [None]

NARRATIVE: CASE EVENT DATE: 20201125
